FAERS Safety Report 17327257 (Version 1)
Quarter: 2020Q1

REPORT INFORMATION
  Report Type: Spontaneous
  Country: US (occurrence: US)
  Receive Date: 20200127
  Receipt Date: 20200127
  Transmission Date: 20200409
  Serious: Yes (Other)
  Sender: FDA-Public Use
  Company Number: US-REGENERON PHARMACEUTICALS, INC.-2019-34923

PATIENT

DRUGS (3)
  1. EYLEA [Suspect]
     Active Substance: AFLIBERCEPT
     Indication: AGE-RELATED MACULAR DEGENERATION
     Dosage: 2 MG, LEFT EYE
     Route: 031
     Dates: start: 20150713
  2. EYLEA [Suspect]
     Active Substance: AFLIBERCEPT
     Indication: CHOROIDAL NEOVASCULARISATION
     Dosage: 2 UNK, UNK
     Route: 031
     Dates: start: 201804
  3. EYLEA [Suspect]
     Active Substance: AFLIBERCEPT
     Dosage: 2 UNK, UNK
     Route: 031
     Dates: start: 20190319, end: 20190319

REACTIONS (2)
  - Anterior chamber inflammation [Recovered/Resolved]
  - Vitritis [Recovered/Resolved]

NARRATIVE: CASE EVENT DATE: 20190319
